FAERS Safety Report 17524514 (Version 1)
Quarter: 2020Q1

REPORT INFORMATION
  Report Type: Spontaneous
  Country: US (occurrence: US)
  Receive Date: 20200303
  Receipt Date: 20200303
  Transmission Date: 20200409
  Serious: Yes (Hospitalization)
  Sender: FDA-Public Use
  Company Number: None

PATIENT
  Age: 71 Year
  Sex: Male

DRUGS (1)
  1. DALFAMPRIDINE 10 MG ER TAB [Suspect]
     Active Substance: DALFAMPRIDINE
     Indication: MULTIPLE SCLEROSIS
     Route: 048
     Dates: start: 201903, end: 202001

REACTIONS (5)
  - Urinary tract infection [None]
  - Multiple sclerosis [None]
  - Therapy cessation [None]
  - Vertigo [None]
  - Dizziness [None]

NARRATIVE: CASE EVENT DATE: 20200117
